FAERS Safety Report 7430829-7 (Version None)
Quarter: 2011Q2

REPORT INFORMATION
  Report Type: 
  Country: None (occurrence: None)
  Receive Date: 20110421
  Receipt Date: 20110407
  Transmission Date: 20111010
  Serious: Yes (Death)
  Sender: FDA-Public Use
  Company Number: CH-BAYER-2011-030045

PATIENT
  Age: 77 Year
  Sex: Male
  Weight: 87 kg

DRUGS (14)
  1. AMLODIPINE [Suspect]
     Dosage: 5 MG, QD
     Route: 048
     Dates: end: 20110303
  2. METFORMIN [Suspect]
     Dosage: 850 MG, BID
     Route: 048
     Dates: end: 20110303
  3. MINALGIN [Concomitant]
     Dosage: 20 ML, UNK
     Dates: end: 20110303
  4. OLFEN [Suspect]
     Dosage: 25 MG, TID
     Route: 048
     Dates: end: 20110222
  5. GLUTRIL [Suspect]
     Dosage: 25 MG, QD
     Route: 048
     Dates: end: 20110303
  6. PANTOPRAZOLE [Suspect]
     Dosage: 20 MG, QD
     Route: 048
     Dates: end: 20110303
  7. PLAVIX [Suspect]
     Dosage: 75 MG, QD
     Route: 048
     Dates: end: 20110303
  8. ENALAPRIL [Suspect]
     Dosage: 10 MG, QD
     Route: 048
     Dates: end: 20110303
  9. ASPIRIN [Suspect]
     Dosage: 100 MG, QD
     Route: 048
     Dates: end: 20110303
  10. METHOTREXAT [Suspect]
     Indication: POLYMYALGIA RHEUMATICA
     Dosage: 1 DF, OW
     Route: 058
     Dates: start: 19960101, end: 20110201
  11. ATENOLOL [Suspect]
     Dosage: 50 MG, QD
     Route: 048
     Dates: end: 20110303
  12. JANUVIA [Concomitant]
     Dosage: 50 MG, QD
     Route: 048
     Dates: end: 20110303
  13. ISOSORBIDE DINITRATE [Concomitant]
     Dosage: 120 MG, QD
     Route: 048
     Dates: end: 20110303
  14. FINASTERIDE [Concomitant]
     Dosage: 5 MG, QD
     Route: 048
     Dates: end: 20110303

REACTIONS (15)
  - INTERNATIONAL NORMALISED RATIO INCREASED [None]
  - DUODENAL ULCER HAEMORRHAGE [None]
  - HEPATIC CIRRHOSIS [None]
  - JAUNDICE [None]
  - VOMITING [None]
  - STUPOR [None]
  - LACTIC ACIDOSIS [None]
  - DIARRHOEA [None]
  - HAEMORRHAGE [None]
  - GASTROOESOPHAGEAL REFLUX DISEASE [None]
  - DUODENITIS [None]
  - HYPOTENSION [None]
  - HEPATORENAL SYNDROME [None]
  - HAEMORRHAGIC ANAEMIA [None]
  - HAEMATEMESIS [None]
